FAERS Safety Report 8622079-3 (Version None)
Quarter: 2012Q3

REPORT INFORMATION
  Report Type: 
  Country: None (occurrence: None)
  Receive Date: 20120822
  Receipt Date: 20120822
  Transmission Date: 20120928
  Serious: Yes (Hospitalization)
  Sender: FDA-Public Use
  Company Number: None

PATIENT
  Sex: Female
  Weight: 63.7 kg

DRUGS (17)
  1. GABAPENTIN [Concomitant]
  2. IRON [Concomitant]
  3. PEPCID [Concomitant]
  4. ATENOLOL [Concomitant]
  5. PROCHLORPERAZINE [Concomitant]
  6. TAXOL [Suspect]
     Dosage: 330 MG
  7. ASPIRIN [Concomitant]
  8. M.V.I. [Concomitant]
  9. CARBOPLATIN [Suspect]
     Dosage: 400 MG
  10. ERBITUX [Suspect]
     Dosage: 1200 MG
  11. NITROGLYCERIN [Concomitant]
  12. AMLODIPINE [Concomitant]
  13. CALCIUM CARBONATE [Concomitant]
  14. HYDROMORPHONE HCL [Concomitant]
  15. ONDANSETRON [Concomitant]
  16. ALENDRONATE SODIUM [Concomitant]
  17. VITAMIN D [Concomitant]

REACTIONS (2)
  - HYPOMAGNESAEMIA [None]
  - ARRHYTHMIA [None]
